FAERS Safety Report 23677234 (Version 5)
Quarter: 2025Q1

REPORT INFORMATION
  Report Type: Report from Study
  Country: IN (occurrence: IN)
  Receive Date: 20240327
  Receipt Date: 20250306
  Transmission Date: 20250409
  Serious: Yes (Other)
  Sender: NOVARTIS
  Company Number: IN-002147023-NVSC2023IN280311

PATIENT
  Age: 80 Year
  Sex: Female

DRUGS (3)
  1. RIBOCICLIB [Suspect]
     Active Substance: RIBOCICLIB
     Indication: Hormone receptor positive HER2 negative breast cancer
     Dosage: 400 MG, QD
     Route: 048
     Dates: start: 20220505
  2. RIBOCICLIB [Suspect]
     Active Substance: RIBOCICLIB
     Indication: Breast cancer metastatic
     Dosage: 600 MG, QD
     Route: 048
  3. RIBOCICLIB [Suspect]
     Active Substance: RIBOCICLIB
     Dosage: 200 MG, QD 1 TABLET(S), (AFTERNOON) (THU) FOR 42 DAY(S) 84 TABLETS. 21 DAYS ON AND 7 DAYS OFF FOR 4
     Route: 048
     Dates: start: 20250227

REACTIONS (19)
  - Neuropathy peripheral [Unknown]
  - Pulmonary mass [Unknown]
  - Back pain [Unknown]
  - Pain in extremity [Unknown]
  - Pain [Unknown]
  - Bone lesion [Recovering/Resolving]
  - Tenderness [Unknown]
  - Gait disturbance [Unknown]
  - Dysstasia [Unknown]
  - Insomnia [Unknown]
  - Peripheral swelling [Unknown]
  - Headache [Unknown]
  - Shoulder deformity [Unknown]
  - Vomiting [Unknown]
  - Oedema [Unknown]
  - Arthralgia [Unknown]
  - Hepatic steatosis [Unknown]
  - Mouth ulceration [Not Recovered/Not Resolved]
  - Mucosal inflammation [Unknown]

NARRATIVE: CASE EVENT DATE: 20230504
